FAERS Safety Report 8521081-X (Version None)
Quarter: 2012Q3

REPORT INFORMATION
  Report Type: 
  Country: None (occurrence: None)
  Receive Date: 20120712
  Receipt Date: 20120712
  Transmission Date: 20120928
  Serious: Yes (Disabling)
  Sender: FDA-Public Use
  Company Number: None

PATIENT
  Age: 48 Year
  Sex: Female
  Weight: 62.1428 kg

DRUGS (2)
  1. MIRENA [Suspect]
     Indication: MENSTRUAL CYCLE MANAGEMENT
     Dates: start: 20070801, end: 20120626
  2. MIRENA [Suspect]
     Indication: CONTRACEPTION
     Dates: start: 20070801, end: 20120626

REACTIONS (3)
  - SYSTEMIC LUPUS ERYTHEMATOSUS [None]
  - DERMATITIS [None]
  - ALOPECIA [None]
